FAERS Safety Report 23880731 (Version 3)
Quarter: 2024Q4

REPORT INFORMATION
  Report Type: Report from Study
  Country: JP (occurrence: JP)
  Receive Date: 20240521
  Receipt Date: 20241018
  Transmission Date: 20250115
  Serious: Yes (Life-Threatening, Hospitalization, Other)
  Sender: ALEXION PHARMACEUTICALS
  Company Number: 2024A117248

PATIENT
  Age: 76 Year
  Weight: 56 kg

DRUGS (8)
  1. DURVALUMAB [Suspect]
     Active Substance: DURVALUMAB
     Indication: Hepatocellular carcinoma
     Dosage: DOSE UNKNOWN
  2. DURVALUMAB [Suspect]
     Active Substance: DURVALUMAB
     Dosage: DOSE UNKNOWN
  3. DURVALUMAB [Suspect]
     Active Substance: DURVALUMAB
     Dosage: DOSE UNKNOWN
  4. DURVALUMAB [Suspect]
     Active Substance: DURVALUMAB
     Dosage: DOSE UNKNOWN
  5. IMJUDO [Suspect]
     Active Substance: TREMELIMUMAB\TREMELIMUMAB-ACTL
     Indication: Hepatocellular carcinoma
     Dosage: DOSE UNKNOWN
  6. IMJUDO [Suspect]
     Active Substance: TREMELIMUMAB\TREMELIMUMAB-ACTL
     Dosage: DOSE UNKNOWN
  7. IMJUDO [Suspect]
     Active Substance: TREMELIMUMAB\TREMELIMUMAB-ACTL
     Dosage: DOSE UNKNOWN
  8. IMJUDO [Suspect]
     Active Substance: TREMELIMUMAB\TREMELIMUMAB-ACTL
     Dosage: DOSE UNKNOWN

REACTIONS (1)
  - Thrombocytopenia [Not Recovered/Not Resolved]
